FAERS Safety Report 6035808-2 (Version None)
Quarter: 2009Q1

REPORT INFORMATION
  Report Type: 
  Country: None (occurrence: None)
  Receive Date: 20090113
  Receipt Date: 20090101
  Transmission Date: 20090719
  Serious: Yes (Other)
  Sender: FDA-Public Use
  Company Number: GB-PFIZER INC-2009150339

PATIENT

DRUGS (1)
  1. SUNITINIB MALATE [Suspect]
     Indication: LYMPHANGIOMA
     Route: 048
     Dates: start: 20081117

REACTIONS (2)
  - DYSPNOEA [None]
  - OEDEMA [None]
